FAERS Safety Report 6446360-1 (Version None)
Quarter: 2009Q4

REPORT INFORMATION
  Report Type: 
  Country: None (occurrence: None)
  Receive Date: 20091119
  Receipt Date: 20091116
  Transmission Date: 20100525
  Serious: Yes (Hospitalization)
  Sender: FDA-Public Use
  Company Number: GB-PURDUE-GBR-2009-0005828

PATIENT
  Age: 30 Year
  Sex: Female

DRUGS (9)
  1. MORPHINE SULFATE [Suspect]
     Indication: DRUG USE FOR UNKNOWN INDICATION
     Route: 065
  2. ONDANSETRON [Suspect]
     Indication: DRUG USE FOR UNKNOWN INDICATION
     Dosage: 4 MG, UNK
     Route: 042
     Dates: start: 20090806, end: 20090806
  3. ATRACURIUM BESYLATE [Concomitant]
  4. CEFUROXIME [Concomitant]
  5. DEXAMETHASONE [Concomitant]
  6. METRONIDAZOLE [Concomitant]
  7. PARACETAMOL [Concomitant]
  8. PROPOFOL [Concomitant]
  9. REMIFENTANIL [Concomitant]

REACTIONS (1)
  - MUSCLE SPASMS [None]
